FAERS Safety Report 4658847-2 (Version None)
Quarter: 2005Q2

REPORT INFORMATION
  Report Type: 
  Country: None (occurrence: None)
  Receive Date: 20050509
  Receipt Date: 20050426
  Transmission Date: 20051028
  Serious: Yes (Life-Threatening, Hospitalization)
  Sender: FDA-Public Use
  Company Number: 2005065228

PATIENT
  Age: 61 Year
  Sex: Male

DRUGS (9)
  1. VIAGRA [Suspect]
     Indication: ILL-DEFINED DISORDER
     Dosage: ORAL
     Route: 048
     Dates: end: 20050401
  2. FLUTICASONE PROPIONATE [Concomitant]
  3. SALMETEROL XINAFOATE (SALMETROL XINAFOATE) [Concomitant]
  4. FLECAINIDE ACETATE [Concomitant]
  5. SALBUTAMOL (SALBUTAMOL) [Concomitant]
  6. THEOPHYLLINE [Concomitant]
  7. EBASTINE [Concomitant]
  8. CARBOCISTEINE (CARBOCISTEINE) [Concomitant]
  9. TIOTROPIUM BROMIDE (TIOTROPUM BROMIDE) [Concomitant]

REACTIONS (3)
  - ASTHMA [None]
  - CARDIAC FAILURE [None]
  - CONDITION AGGRAVATED [None]
